FAERS Safety Report 7257967-6 (Version None)
Quarter: 2011Q1

REPORT INFORMATION
  Report Type: 
  Country: None (occurrence: None)
  Receive Date: 20110129
  Receipt Date: 20100611
  Transmission Date: 20110831
  Serious: No
  Sender: FDA-Public Use
  Company Number: US-ABBOTT-10P-163-0651468-00

PATIENT
  Sex: Male
  Weight: 86.26 kg

DRUGS (8)
  1. DILTIAZEM [Concomitant]
     Indication: ARTERIOSPASM CORONARY
  2. CALCIUM [Concomitant]
     Indication: PRODUCT USED FOR UNKNOWN INDICATION
  3. METHOTREXATE [Concomitant]
     Indication: PSORIATIC ARTHROPATHY
     Dates: start: 20060101, end: 20080101
  4. CENTRUM SILVER [Concomitant]
     Indication: PRODUCT USED FOR UNKNOWN INDICATION
  5. HUMIRA [Suspect]
     Indication: PSORIATIC ARTHROPATHY
     Dates: start: 20060101, end: 20070101
  6. VITAMIN B [Concomitant]
     Indication: PRODUCT USED FOR UNKNOWN INDICATION
  7. LISINOPRIL [Concomitant]
     Indication: HYPERTENSION
  8. ASCORBIC ACID [Concomitant]
     Indication: PRODUCT USED FOR UNKNOWN INDICATION

REACTIONS (3)
  - VITAMIN D DEFICIENCY [None]
  - ARTHRITIS [None]
  - HYPOTHYROIDISM [None]
